FAERS Safety Report 5818329-9 (Version None)
Quarter: 2008Q3

REPORT INFORMATION
  Report Type: 
  Country: None (occurrence: None)
  Receive Date: 20080722
  Receipt Date: 20080715
  Transmission Date: 20090109
  Serious: Yes (Other)
  Sender: FDA-Public Use
  Company Number: IT-BAXTER-2008BH007427

PATIENT
  Age: 6 Year
  Sex: Male
  Weight: 18 kg

DRUGS (9)
  1. HEPARIN SODIUM 5,000 UNITS IN DEXTROSE 5% [Suspect]
     Indication: THROMBOSIS PROPHYLAXIS
     Route: 042
  2. MIDAZOLAM HCL [Concomitant]
     Indication: GENERAL ANAESTHESIA
     Route: 065
  3. CISATRACURIUM BESILATE [Concomitant]
     Indication: GENERAL ANAESTHESIA
     Route: 065
  4. REMIFENTANIL [Concomitant]
     Indication: GENERAL ANAESTHESIA
     Route: 065
  5. REMIFENTANIL [Concomitant]
     Route: 042
  6. CISATRACURIUM BESILATE [Concomitant]
     Route: 042
  7. MIDAZOLAM HCL [Concomitant]
     Route: 042
  8. AMOXICILLIN + CLAVULANATE POTASSIUM [Concomitant]
     Indication: ANTIBIOTIC PROPHYLAXIS
     Route: 065
  9. METHYLPREDNISOLONE [Concomitant]
     Indication: PROPHYLAXIS
     Route: 065

REACTIONS (1)
  - ANAPHYLACTIC SHOCK [None]
